FAERS Safety Report 8524209-0 (Version None)
Quarter: 2012Q3

REPORT INFORMATION
  Report Type: 
  Country: None (occurrence: None)
  Receive Date: 20120716
  Receipt Date: 20120716
  Transmission Date: 20120928
  Serious: Yes (Other)
  Sender: FDA-Public Use
  Company Number: None

PATIENT
  Sex: Female

DRUGS (2)
  1. PRISTIQ [Concomitant]
  2. ACTONEL [Suspect]
     Indication: OSTEOPENIA
     Dosage: 150 MG ONCE A MONTH PO; ONE TIME ON 07/11/2012
     Route: 048
     Dates: start: 20120711

REACTIONS (4)
  - CHEST PAIN [None]
  - OROPHARYNGEAL PAIN [None]
  - DISCOMFORT [None]
  - DYSPHAGIA [None]
